FAERS Safety Report 16481025 (Version 2)
Quarter: 2019Q3

REPORT INFORMATION
  Report Type: Spontaneous
  Country: FR (occurrence: FR)
  Receive Date: 20190626
  Receipt Date: 20190904
  Transmission Date: 20191004
  Serious: Yes (Hospitalization)
  Sender: FDA-Public Use
  Company Number: FR-SHIRE-FR201920343

PATIENT

DRUGS (5)
  1. HYDRATION VITAMIN [Concomitant]
     Indication: PRODUCT USED FOR UNKNOWN INDICATION
  2. HYDROXYZINE [Concomitant]
     Active Substance: HYDROXYZINE HYDROCHLORIDE
     Indication: PREMEDICATION
  3. POLARAMINE [Concomitant]
     Active Substance: DEXCHLORPHENIRAMINE MALEATE
     Indication: PRODUCT USED FOR UNKNOWN INDICATION
  4. ELAPRASE [Suspect]
     Active Substance: IDURSULFASE
     Indication: PRODUCT USED FOR UNKNOWN INDICATION
     Dosage: 18 MILLIGRAM, 1X/WEEK
     Route: 042
  5. ELAPRASE [Suspect]
     Active Substance: IDURSULFASE
     Dosage: 12 MILLIGRAM, 1X/WEEK
     Route: 042
     Dates: start: 20171013

REACTIONS (10)
  - Hypertension [Unknown]
  - Scoliosis [Unknown]
  - Tachycardia [Unknown]
  - Haemodynamic instability [Recovered/Resolved]
  - Pallor [Recovered/Resolved]
  - Incorrect product administration duration [Unknown]
  - Incorrect drug administration rate [Unknown]
  - Infusion related reaction [Unknown]
  - Chills [Recovered/Resolved]
  - Cyanosis [Recovered/Resolved]

NARRATIVE: CASE EVENT DATE: 20190611
